FAERS Safety Report 18924716 (Version 2)
Quarter: 2021Q1

REPORT INFORMATION
  Report Type: Spontaneous
  Country: US (occurrence: US)
  Receive Date: 20210223
  Receipt Date: 20210303
  Transmission Date: 20210420
  Serious: No
  Sender: FDA-Public Use
  Company Number: US-MTPC-MTDA2021-0004824

PATIENT
  Sex: Male

DRUGS (3)
  1. RADICAVA [Suspect]
     Active Substance: EDARAVONE
     Indication: AMYOTROPHIC LATERAL SCLEROSIS
     Dosage: QD FOR 14 DAYS IN A ROW
     Route: 042
     Dates: start: 20200630
  2. FLUOXETINE [Concomitant]
     Active Substance: FLUOXETINE HYDROCHLORIDE
     Indication: PRODUCT USED FOR UNKNOWN INDICATION
     Dosage: 40 MILLIGRAM, QD
     Route: 048
  3. RADICAVA [Suspect]
     Active Substance: EDARAVONE
     Dosage: 60 MILLIGRAM, QD FOR 10 DAYS OVER 14 DAYS
     Route: 042
     Dates: start: 20200630, end: 20210210

REACTIONS (1)
  - Drug ineffective [Unknown]
